FAERS Safety Report 5672856-6 (Version None)
Quarter: 2008Q1

REPORT INFORMATION
  Report Type: 
  Country: None (occurrence: None)
  Receive Date: 20080319
  Receipt Date: 20080312
  Transmission Date: 20080703
  Serious: Yes (Other)
  Sender: FDA-Public Use
  Company Number: GB-ABBOTT-07P-167-0425479-00

PATIENT
  Sex: Female

DRUGS (2)
  1. EPILIM SYRUP [Suspect]
     Indication: MYOCLONIC EPILEPSY
     Route: 048
     Dates: start: 20071008
  2. EPILIM SYRUP [Suspect]
     Route: 048
     Dates: start: 20071008

REACTIONS (2)
  - DEVELOPMENTAL DELAY [None]
  - GAIT DISTURBANCE [None]
